FAERS Safety Report 10267550 (Version 1)
Quarter: 2014Q2

REPORT INFORMATION
  Report Type: Spontaneous
  Country: US (occurrence: US)
  Receive Date: 20140630
  Receipt Date: 20140630
  Transmission Date: 20141212
  Serious: No
  Sender: FDA-Public Use
  Company Number: US-PFIZER INC-2014174638

PATIENT
  Sex: Female

DRUGS (1)
  1. PREMARIN [Suspect]
     Indication: OSTEOARTHRITIS
     Dosage: 0.3 MG, UNK

REACTIONS (2)
  - Hot flush [Unknown]
  - Activities of daily living impaired [Unknown]
